FAERS Safety Report 18965526 (Version 1)
Quarter: 2021Q1

REPORT INFORMATION
  Report Type: Report from Study
  Country: US (occurrence: US)
  Receive Date: 20210304
  Receipt Date: 20210304
  Transmission Date: 20210420
  Serious: Yes (Hospitalization, Other)
  Sender: FDA-Public Use
  Company Number: US-BRISTOL-MYERS SQUIBB COMPANY-BMS-2021-019532

PATIENT
  Sex: Male
  Weight: 82.55 kg

DRUGS (7)
  1. APIXABAN [Suspect]
     Active Substance: APIXABAN
     Dosage: UNK UNK, BID
     Route: 048
     Dates: start: 20210223
  2. METOPROLOL. [Concomitant]
     Active Substance: METOPROLOL
     Indication: PRODUCT USED FOR UNKNOWN INDICATION
     Dosage: 25 MILLIGRAM, QD
  3. SYNTHROID [Concomitant]
     Active Substance: LEVOTHYROXINE SODIUM
     Indication: THYROID FUNCTION TEST ABNORMAL
     Dosage: 12 MILLIGRAM, QD
     Route: 065
  4. ROSUVASTATIN. [Concomitant]
     Active Substance: ROSUVASTATIN
     Indication: PRODUCT USED FOR UNKNOWN INDICATION
     Dosage: 10 MILLIGRAM, QD
  5. APIXABAN [Suspect]
     Active Substance: APIXABAN
     Indication: CEREBROVASCULAR ACCIDENT PROPHYLAXIS
     Dosage: UNK UNK, BID
     Route: 048
  6. BABY ASPIRIN [Concomitant]
     Active Substance: ASPIRIN
     Indication: PRODUCT USED FOR UNKNOWN INDICATION
     Dosage: 81 ONE DAY
     Route: 065
  7. CLONIDINE. [Concomitant]
     Active Substance: CLONIDINE
     Indication: PRODUCT USED FOR UNKNOWN INDICATION
     Dosage: 0.1 TAKES HALF OF IT
     Route: 065

REACTIONS (2)
  - Tooth disorder [Unknown]
  - Haemorrhage [Unknown]
